FAERS Safety Report 9457270 (Version 2)
Quarter: 2013Q3

REPORT INFORMATION
  Report Type: Spontaneous
  Country: JP (occurrence: JP)
  Receive Date: 20130814
  Receipt Date: 20130816
  Transmission Date: 20140515
  Serious: Yes (Hospitalization)
  Sender: FDA-Public Use
  Company Number: PHHY2013JP085687

PATIENT
  Sex: Male

DRUGS (6)
  1. TEGRETOL [Suspect]
     Indication: EPILEPSY
     Dosage: 1 DF, BID
     Route: 048
  2. ARTANE [Concomitant]
     Dosage: UNK UKN, UNK
     Route: 048
  3. SERENACE [Concomitant]
     Dosage: 2 MG, UNK
     Route: 048
  4. DEPAKENE [Concomitant]
     Dosage: 600 MG, UNK
     Route: 048
  5. DEPAKENE [Concomitant]
     Dosage: 400 MG, UNK
     Route: 048
  6. DEPAKENE [Concomitant]
     Dosage: DECREASED DOSE FROM 3 TO 2 TABLETS ON HIS OWN ACCORD
     Route: 048

REACTIONS (7)
  - Fall [Unknown]
  - Face injury [Unknown]
  - Gait disturbance [Unknown]
  - Eye movement disorder [Unknown]
  - Somnolence [Unknown]
  - Dizziness [Unknown]
  - Dizziness postural [Unknown]
